FAERS Safety Report 22271591 (Version 1)
Quarter: 2023Q2

REPORT INFORMATION
  Report Type: Spontaneous
  Country: US (occurrence: US)
  Receive Date: 20230502
  Receipt Date: 20230502
  Transmission Date: 20230721
  Serious: Yes (Life-Threatening, Hospitalization, Other)
  Sender: FDA-Public Use
  Company Number: US-MLMSERVICE-2023041742199682

PATIENT
  Age: 66 Year
  Sex: Female

DRUGS (7)
  1. CISPLATIN [Suspect]
     Active Substance: CISPLATIN
     Indication: Gestational trophoblastic tumour
  2. ETOPOSIDE [Suspect]
     Active Substance: ETOPOSIDE
     Indication: Gestational trophoblastic tumour
  3. METHOTREXATE [Suspect]
     Active Substance: METHOTREXATE
     Indication: Placental neoplasm
     Dosage: 3 CYCLES- ON DAY 8 EVERY TWO WEEKS
  4. DACTINOMYCIN [Suspect]
     Active Substance: DACTINOMYCIN
     Indication: Gestational trophoblastic tumour
  5. METHOTREXATE [Suspect]
     Active Substance: METHOTREXATE
     Indication: Gestational trophoblastic tumour
     Dosage: 3 CYCLES- ON DAY 8 EVERY TWO WEEKS
  6. DACTINOMYCIN [Suspect]
     Active Substance: DACTINOMYCIN
     Indication: Placental neoplasm
  7. CISPLATIN [Suspect]
     Active Substance: CISPLATIN
     Indication: Placental neoplasm

REACTIONS (7)
  - Thrombocytopenia [Unknown]
  - Mucosal inflammation [Unknown]
  - Sepsis [Unknown]
  - Anaemia [Unknown]
  - Drug intolerance [Unknown]
  - Neutropenia [Unknown]
  - Off label use [Unknown]
